FAERS Safety Report 13650995 (Version 4)
Quarter: 2017Q4

REPORT INFORMATION
  Report Type: Spontaneous
  Country: US (occurrence: US)
  Receive Date: 20170614
  Receipt Date: 20171005
  Transmission Date: 20180320
  Serious: Yes (Death)
  Sender: FDA-Public Use
  Company Number: US-PFIZER INC-2017258315

PATIENT
  Age: 31 Year
  Sex: Male
  Weight: 121 kg

DRUGS (5)
  1. BREO ELLIPTA [Concomitant]
     Active Substance: FLUTICASONE FUROATE\VILANTEROL TRIFENATATE
     Dosage: UNK
  2. DIPHENHYDRAMINE HYDROCHLORIDE. [Concomitant]
     Active Substance: DIPHENHYDRAMINE HYDROCHLORIDE
     Dosage: UNK
  3. EPIPEN [Suspect]
     Active Substance: EPINEPHRINE
     Indication: HYPERSENSITIVITY
     Dosage: UNK
     Dates: start: 20161025, end: 20161025
  4. EPIPEN [Suspect]
     Active Substance: EPINEPHRINE
     Indication: ASTHMA
  5. SALBUTAMOL SULFATE [Concomitant]
     Active Substance: ALBUTEROL SULFATE
     Dosage: UNK

REACTIONS (6)
  - Hypersensitivity [Fatal]
  - Device failure [Fatal]
  - Product quality issue [Fatal]
  - Device use issue [Fatal]
  - Asthma [Fatal]
  - Drug dose omission [Unknown]

NARRATIVE: CASE EVENT DATE: 20161025
